FAERS Safety Report 7754090-9 (Version None)
Quarter: 2011Q3

REPORT INFORMATION
  Report Type: 
  Country: None (occurrence: None)
  Receive Date: 20110915
  Receipt Date: 20110909
  Transmission Date: 20111222
  Serious: Yes (Other)
  Sender: FDA-Public Use
  Company Number: PHHY2011US18334

PATIENT
  Sex: Female

DRUGS (4)
  1. PROPRANOLOL [Concomitant]
     Dosage: UNK UKN, UNK
  2. HYDROCHLOROTHIAZIDE [Concomitant]
     Dosage: UNK UKN, UNK
  3. NEXIUM [Concomitant]
     Dosage: UNK UKN, UNK
  4. HYPOTEARS DDPF [Suspect]
     Indication: DRY EYE
     Dosage: 15 ML, PRN (EYES 5-6 TIMES DAILY)
     Dates: start: 20100901, end: 20101001

REACTIONS (5)
  - EYELID TUMOUR [None]
  - EYE IRRITATION [None]
  - MACULAR DEGENERATION [None]
  - SUPERFICIAL INJURY OF EYE [None]
  - BLEPHARITIS [None]
